FAERS Safety Report 23949211 (Version 1)
Quarter: 2024Q2

REPORT INFORMATION
  Report Type: Spontaneous
  Country: NL (occurrence: NL)
  Receive Date: 20240607
  Receipt Date: 20240607
  Transmission Date: 20240716
  Serious: Yes (Other)
  Sender: FDA-Public Use
  Company Number: None

PATIENT
  Age: 43 Year
  Sex: Female
  Weight: 74 kg

DRUGS (1)
  1. DESLORATADINE [Suspect]
     Active Substance: DESLORATADINE
     Indication: Urticaria chronic
     Dosage: 1X PER DAY 1 PIECE
     Dates: start: 20240301

REACTIONS (6)
  - Depressed mood [Recovering/Resolving]
  - Mental impairment [Recovering/Resolving]
  - Anxiety [Recovering/Resolving]
  - Anger [Recovering/Resolving]
  - Palpitations [Recovering/Resolving]
  - Confusional state [Recovering/Resolving]
